FAERS Safety Report 24983748 (Version 1)
Quarter: 2025Q1

REPORT INFORMATION
  Report Type: Spontaneous
  Country: GB (occurrence: GB)
  Receive Date: 20250219
  Receipt Date: 20250219
  Transmission Date: 20250409
  Serious: Yes (Other)
  Sender: RANBAXY
  Company Number: GB-SUN PHARMACEUTICAL INDUSTRIES LTD-2025RR-495129

PATIENT
  Age: 73 Year
  Sex: Male
  Weight: 115 kg

DRUGS (24)
  1. TAMSULOSIN [Suspect]
     Active Substance: TAMSULOSIN
     Indication: Product used for unknown indication
     Dosage: 0.4 MILLIGRAM, DAILY
     Route: 048
     Dates: start: 20241023
  2. ATRAUMAN [Concomitant]
     Indication: Ill-defined disorder
     Route: 065
     Dates: start: 20241022, end: 20241105
  3. DRESSIT [Concomitant]
     Indication: Ill-defined disorder
     Route: 065
     Dates: start: 20241220, end: 20250103
  4. IRRIPOD [Concomitant]
     Indication: Ill-defined disorder
     Route: 065
     Dates: start: 20241022, end: 20241119
  5. SOFTPORE [Concomitant]
     Indication: Ill-defined disorder
     Route: 065
     Dates: start: 20241220, end: 20250103
  6. CLOBETASOL [Concomitant]
     Active Substance: CLOBETASOL
     Indication: Ill-defined disorder
     Route: 065
     Dates: start: 20241025, end: 20241122
  7. DOXYCYCLINE [Concomitant]
     Active Substance: DOXYCYCLINE
     Indication: Ill-defined disorder
     Route: 065
     Dates: start: 20241025, end: 20241101
  8. OCTENISAN [Concomitant]
     Indication: Ill-defined disorder
     Route: 065
     Dates: start: 20241029, end: 20241103
  9. OCTENISAN [Concomitant]
     Indication: Ill-defined disorder
     Route: 065
     Dates: start: 20241025, end: 20241030
  10. DERMOL [Concomitant]
     Active Substance: BENZALKONIUM CHLORIDE\CHLORHEXIDINE HYDROCHLORIDE\ISOPROPYL MYRISTATE\PARAFFIN
     Indication: Ill-defined disorder
     Route: 065
     Dates: start: 20241111, end: 20241209
  11. ACTIVA CLASS 1 [Concomitant]
     Indication: Ill-defined disorder
     Route: 065
     Dates: start: 20241118
  12. CUTIMED SILTEC B [Concomitant]
     Indication: Ill-defined disorder
     Route: 065
     Dates: start: 20241125, end: 20241209
  13. INADINE [Concomitant]
     Indication: Ill-defined disorder
     Route: 065
     Dates: start: 20241125, end: 20241209
  14. MEDI DERMA-S [Concomitant]
     Indication: Ill-defined disorder
     Route: 065
     Dates: start: 20241125, end: 20241126
  15. OCTENILIN [Concomitant]
     Indication: Ill-defined disorder
     Route: 065
     Dates: start: 20241125, end: 20241209
  16. CLARITHROMYCIN [Concomitant]
     Active Substance: CLARITHROMYCIN
     Indication: Ill-defined disorder
     Route: 065
     Dates: start: 20250121
  17. APIXABAN [Concomitant]
     Active Substance: APIXABAN
     Indication: Ill-defined disorder
     Route: 065
     Dates: start: 20211111
  18. BISOPROLOL [Concomitant]
     Active Substance: BISOPROLOL
     Indication: Ill-defined disorder
     Route: 065
     Dates: start: 20211111
  19. OMEPRAZOLE [Concomitant]
     Active Substance: OMEPRAZOLE
     Indication: Ill-defined disorder
     Route: 065
     Dates: start: 20211111
  20. RAMIPRIL [Concomitant]
     Active Substance: RAMIPRIL
     Indication: Ill-defined disorder
     Route: 065
     Dates: start: 20231010, end: 20241111
  21. ADCAL [Concomitant]
     Indication: Ill-defined disorder
     Route: 065
     Dates: start: 20240308
  22. DOCUSATE SODIUM [Concomitant]
     Active Substance: DOCUSATE SODIUM
     Indication: Ill-defined disorder
     Route: 065
     Dates: start: 20240308
  23. ELASTIC HOSIERY CLASS 1 [Concomitant]
     Indication: Ill-defined disorder
     Route: 065
     Dates: start: 20240403
  24. FUROSEMIDE [Concomitant]
     Active Substance: FUROSEMIDE
     Indication: Ill-defined disorder
     Route: 065
     Dates: start: 20240412

REACTIONS (1)
  - Skin reaction [Recovering/Resolving]
